FAERS Safety Report 8948543 (Version 1)
Quarter: 2012Q4

REPORT INFORMATION
  Report Type: 
  Country: US (occurrence: US)
  Receive Date: 20121206
  Receipt Date: 20121206
  Transmission Date: 20130627
  Serious: No
  Sender: FDA-Public Use
  Company Number: PHEH2012US023902

PATIENT
  Age: 76 Year
  Sex: Female

DRUGS (10)
  1. TASIGNA [Suspect]
     Indication: CHRONIC MYELOID LEUKAEMIA
     Dosage: 300 mg, Q12H
     Route: 048
     Dates: start: 20120616
  2. NIASPAN [Concomitant]
  3. ZOLOFT [Concomitant]
  4. ALLOPURINOL [Concomitant]
  5. LEVOTHROID [Concomitant]
  6. ATENOLOL [Concomitant]
  7. LISINOPRIL [Concomitant]
  8. SIMVASTATIN [Concomitant]
  9. GEMFIBROZIL [Concomitant]
  10. PLAVIX [Concomitant]

REACTIONS (2)
  - Seborrhoeic dermatitis [Not Recovered/Not Resolved]
  - Pruritus [Not Recovered/Not Resolved]
